FAERS Safety Report 9748278 (Version 2)
Quarter: 2014Q1

REPORT INFORMATION
  Report Type: Spontaneous
  Country: US (occurrence: US)
  Receive Date: 20131212
  Receipt Date: 20140102
  Transmission Date: 20141002
  Serious: Yes (Hospitalization)
  Sender: FDA-Public Use
  Company Number: US-JNJFOC-20131204729

PATIENT
  Age: 65 Year
  Sex: Male
  Weight: 81.7 kg

DRUGS (7)
  1. XARELTO [Suspect]
     Indication: PULMONARY EMBOLISM
     Route: 048
     Dates: start: 20131029, end: 2013
  2. XARELTO [Suspect]
     Indication: DEEP VEIN THROMBOSIS
     Route: 048
     Dates: start: 20131029, end: 2013
  3. NEURONTIN [Concomitant]
     Route: 065
  4. ALBUTEROL [Concomitant]
     Route: 055
  5. VICODIN [Concomitant]
     Route: 065
  6. PROTONIX [Concomitant]
     Route: 065
  7. MAGNESIUM OXIDE [Concomitant]
     Route: 065

REACTIONS (4)
  - Scrotal oedema [Recovered/Resolved]
  - Oedema peripheral [Recovered/Resolved]
  - Rash macular [Recovered/Resolved]
  - Blister [Unknown]
